FAERS Safety Report 4828077-X (Version None)
Quarter: 2005Q4

REPORT INFORMATION
  Report Type: 
  Country: None (occurrence: None)
  Receive Date: 20051115
  Receipt Date: 20051014
  Transmission Date: 20060501
  Serious: Yes (Disabling, Other)
  Sender: FDA-Public Use
  Company Number: GBWYE057614OCT05

PATIENT
  Sex: Male

DRUGS (13)
  1. ENBREL [Suspect]
     Indication: RHEUMATOID ARTHRITIS
     Dosage: UNKNOWN
     Route: 058
     Dates: start: 20050801, end: 20051011
  2. PREDNISOLONE [Concomitant]
  3. SIMVASTATIN [Concomitant]
  4. ASPIRIN [Concomitant]
  5. TRAZODONE HCL [Concomitant]
     Dosage: UNKNOWN DOSE TWICE DAILY
     Route: 048
  6. TRAZODONE HCL [Concomitant]
     Dosage: UNKNOWN DOSE ONCE DAILY
  7. METHOTREXATE [Concomitant]
  8. FUROSEMIDE [Concomitant]
  9. LANSOPRAZOLE [Concomitant]
  10. NABUMETONE [Concomitant]
  11. RALOXIFENE HCL [Concomitant]
  12. HYDROXOCOBALAMIN [Concomitant]
  13. CALCIUM CARBONATE [Concomitant]

REACTIONS (7)
  - AGITATION [None]
  - CONFUSIONAL STATE [None]
  - DEPRESSION [None]
  - HYPERAESTHESIA [None]
  - OEDEMA PERIPHERAL [None]
  - PAIN OF SKIN [None]
  - SKIN DISCOLOURATION [None]
